FAERS Safety Report 6524350 (Version 2)
Quarter: 2015Q2

REPORT INFORMATION
  Report Type: Spontaneous
  Country: DE (occurrence: None)
  Receive Date: 20071228
  Receipt Date: 20150428
  Transmission Date: 20150821
  Serious: Yes (Death, Hospitalization)
  Sender: FDA-Public Use
  Company Number: GRP07000182

PATIENT
  Age: 77 Year
  Sex: Female
  Weight: 84 kg

DRUGS (6)
  1. LEVOTHYROXINE SODIUM. [Concomitant]
     Active Substance: LEVOTHYROXINE SODIUM
  2. CALCICAL (CALCIUM CARBONATE) [Concomitant]
  3. OBSIDAN (PROPRANOLOL HYDROCHLORIDE) [Concomitant]
  4. CORINFAR (NIFEDIPINE) [Concomitant]
  5. UNSPECIFIED INGREDIENT [Concomitant]
     Active Substance: UNSPECIFIED INGREDIENT
  6. ACTONEL [Suspect]
     Active Substance: RISEDRONATE SODIUM
     Indication: OSTEOPOROTIC FRACTURE
     Dosage: 35 MG, 1 /WEEK, ORAL
     Route: 048
     Dates: start: 20071002, end: 200711

REACTIONS (11)
  - Depression [None]
  - Dizziness [None]
  - Cardiac discomfort [None]
  - Ear pain [None]
  - Angina pectoris [None]
  - Formication [None]
  - Headache [None]
  - Acute psychosis [None]
  - Influenza like illness [None]
  - Chest discomfort [None]
  - Myalgia [None]

NARRATIVE: CASE EVENT DATE: 2007
